FAERS Safety Report 6044996-3 (Version None)
Quarter: 2009Q1

REPORT INFORMATION
  Report Type: 
  Country: None (occurrence: None)
  Receive Date: 20090116
  Receipt Date: 20090116
  Transmission Date: 20090719
  Serious: No
  Sender: FDA-Public Use
  Company Number: None

PATIENT
  Age: 73 Year
  Sex: Female
  Weight: 53.978 kg

DRUGS (1)
  1. PROAIR HFA [Suspect]
     Dosage: 2 PUFFS TWICE A DAY
     Dates: start: 20090101

REACTIONS (3)
  - HEADACHE [None]
  - OROPHARYNGEAL PAIN [None]
  - PRODUCT QUALITY ISSUE [None]
